FAERS Safety Report 24184192 (Version 2)
Quarter: 2025Q1

REPORT INFORMATION
  Report Type: Report from Study
  Country: US (occurrence: US)
  Receive Date: 20240807
  Receipt Date: 20250314
  Transmission Date: 20250409
  Serious: No
  Sender: TAKEDA
  Company Number: US-TAKEDA-2021TUS027373

PATIENT
  Sex: Female
  Weight: 70.29 kg

DRUGS (38)
  1. HUMAN IMMUNOGLOBULIN G [Suspect]
     Active Substance: HUMAN IMMUNOGLOBULIN G
     Indication: Primary immunodeficiency syndrome
     Dosage: 10 GRAM, 1/WEEK
     Dates: start: 20180706
  2. HUMAN IMMUNOGLOBULIN G [Suspect]
     Active Substance: HUMAN IMMUNOGLOBULIN G
     Indication: Immunodeficiency common variable
     Dosage: 10 GRAM, 1/WEEK
     Dates: start: 20210312
  3. XEMBIFY [Suspect]
     Active Substance: HUMAN IMMUNOGLOBULIN G
     Indication: Product used for unknown indication
  4. COVID-19 VACCINE NOS [Suspect]
     Active Substance: COVID-19 VACCINE
     Indication: Product used for unknown indication
  5. DIPHENHYDRAMINE [Concomitant]
     Active Substance: DIPHENHYDRAMINE
  6. ATIVAN [Concomitant]
     Active Substance: LORAZEPAM
  7. CLARITIN [Concomitant]
     Active Substance: LORATADINE
  8. VITAMIN D3 [Concomitant]
     Active Substance: CHOLECALCIFEROL
  9. EPINEPHRINE [Concomitant]
     Active Substance: EPINEPHRINE
  10. FLUTICASONE PROPIONATE [Concomitant]
     Active Substance: FLUTICASONE PROPIONATE
  11. COZAAR [Concomitant]
     Active Substance: LOSARTAN POTASSIUM
  12. LYRICA [Concomitant]
     Active Substance: PREGABALIN
  13. OMEPRAZOLE [Concomitant]
     Active Substance: OMEPRAZOLE
  14. ACETAMINOPHEN [Concomitant]
     Active Substance: ACETAMINOPHEN
  15. SINGULAIR [Concomitant]
     Active Substance: MONTELUKAST SODIUM
  16. OTEZLA [Concomitant]
     Active Substance: APREMILAST
  17. MELOXICAM [Concomitant]
     Active Substance: MELOXICAM
  18. GLYXAMBI [Concomitant]
     Active Substance: EMPAGLIFLOZIN\LINAGLIPTIN
  19. TREMFYA [Concomitant]
     Active Substance: GUSELKUMAB
  20. CARISOPRODOL [Concomitant]
     Active Substance: CARISOPRODOL
  21. FLUVOXAMINE MALEATE [Concomitant]
     Active Substance: FLUVOXAMINE MALEATE
  22. LIDOCAINE [Concomitant]
     Active Substance: LIDOCAINE
  23. ZOCOR [Concomitant]
     Active Substance: SIMVASTATIN
  24. TRESIBA [Concomitant]
     Active Substance: INSULIN DEGLUDEC
  25. LANTUS [Concomitant]
     Active Substance: INSULIN GLARGINE
  26. OZEMPIC [Concomitant]
     Active Substance: SEMAGLUTIDE
  27. VOLTAREN XR [Concomitant]
     Active Substance: DICLOFENAC SODIUM
  28. ORENCIA [Concomitant]
     Active Substance: ABATACEPT
  29. HIZENTRA [Concomitant]
     Active Substance: HUMAN IMMUNOGLOBULIN G
  30. XELJANZ [Concomitant]
     Active Substance: TOFACITINIB CITRATE
  31. Lmx [Concomitant]
  32. MOUNJARO [Concomitant]
     Active Substance: TIRZEPATIDE
  33. METHOTREXATE [Concomitant]
     Active Substance: METHOTREXATE
  34. DIPHENHYDRAMINE HYDROCHLORIDE [Concomitant]
     Active Substance: DIPHENHYDRAMINE HYDROCHLORIDE
  35. TALTZ [Concomitant]
     Active Substance: IXEKIZUMAB
  36. BACLOFEN [Concomitant]
     Active Substance: BACLOFEN
  37. LIDOCAINE\PRILOCAINE [Concomitant]
     Active Substance: LIDOCAINE\PRILOCAINE
  38. BUSPIRONE HCL [Concomitant]
     Active Substance: BUSPIRONE HYDROCHLORIDE

REACTIONS (13)
  - Seasonal allergy [Unknown]
  - Dermatitis contact [Unknown]
  - COVID-19 [Recovering/Resolving]
  - Blood glucose abnormal [Recovering/Resolving]
  - Nasopharyngitis [Unknown]
  - Bronchitis [Recovering/Resolving]
  - Pharyngitis streptococcal [Unknown]
  - Product dose omission issue [Unknown]
  - Product use issue [Unknown]
  - Upper respiratory tract infection [Recovering/Resolving]
  - Fatigue [Recovering/Resolving]
  - Headache [Unknown]
  - Pruritus [Unknown]
